FAERS Safety Report 15748674 (Version 2)
Quarter: 2022Q1

REPORT INFORMATION
  Report Type: Spontaneous
  Country: CH (occurrence: CH)
  Receive Date: 20181221
  Receipt Date: 20220131
  Transmission Date: 20220424
  Serious: Yes (Hospitalization)
  Sender: FDA-Public Use
  Company Number: CH-SM-2018-14528

PATIENT
  Age: 89 Year
  Sex: Female
  Weight: 64.6 kg

DRUGS (4)
  1. AMOXICILLIN\CLAVULANATE POTASSIUM [Suspect]
     Active Substance: AMOXICILLIN\CLAVULANATE POTASSIUM
     Indication: Pneumonia
     Dosage: 3600 MILLIGRAM DAILY;
     Route: 041
     Dates: start: 20181109, end: 20181115
  2. AMOXICILLIN\CLAVULANATE POTASSIUM [Suspect]
     Active Substance: AMOXICILLIN\CLAVULANATE POTASSIUM
     Indication: Pneumonia
     Dosage: 1875 MILLIGRAM DAILY;
     Route: 048
     Dates: start: 20181116, end: 20181119
  3. ASPIRIN [Concomitant]
     Active Substance: ASPIRIN
     Route: 048
  4. RANITIDIN-MEPHA [Concomitant]
     Route: 048

REACTIONS (1)
  - Skin reaction [Recovered/Resolved]

NARRATIVE: CASE EVENT DATE: 20181202
